FAERS Safety Report 21617773 (Version 1)
Quarter: 2022Q4

REPORT INFORMATION
  Report Type: Report from Study
  Country: BE (occurrence: BE)
  Receive Date: 20221119
  Receipt Date: 20221119
  Transmission Date: 20230113
  Serious: Yes (Life-Threatening, Other)
  Sender: FDA-Public Use
  Company Number: BE-TEVA-2022-BE-2820407

PATIENT
  Age: 22 Year
  Sex: Female
  Weight: 108 kg

DRUGS (4)
  1. COPAXONE [Suspect]
     Active Substance: GLATIRAMER ACETATE
     Indication: Multiple sclerosis
     Dosage: COPAXONE 40 MG/ML
     Route: 058
     Dates: start: 20220414, end: 20221021
  2. WELLBUTRIN XL [Concomitant]
     Active Substance: BUPROPION HYDROCHLORIDE
     Indication: Depression
     Dosage: 150 MILLIGRAM DAILY;
     Route: 048
  3. OXYBUTYNIN [Concomitant]
     Active Substance: OXYBUTYNIN
     Indication: Nocturia
     Dosage: 5 MILLIGRAM DAILY;
     Route: 048
  4. ESCITALOPRAM OXALATE [Concomitant]
     Active Substance: ESCITALOPRAM OXALATE
     Indication: Depression
     Dosage: 10 MILLIGRAM DAILY;
     Route: 048

REACTIONS (8)
  - Angioedema [Recovered/Resolved]
  - Type I hypersensitivity [Unknown]
  - Malaise [Recovered/Resolved]
  - Dyspnoea [Unknown]
  - Swelling face [Recovered/Resolved]
  - Skin plaque [Unknown]
  - Pharyngeal swelling [Recovered/Resolved]
  - Pruritus [Unknown]

NARRATIVE: CASE EVENT DATE: 20220501
